FAERS Safety Report 20592881 (Version 2)
Quarter: 2022Q1

REPORT INFORMATION
  Report Type: Spontaneous
  Country: US (occurrence: US)
  Receive Date: 20220315
  Receipt Date: 20220322
  Transmission Date: 20220423
  Serious: No
  Sender: FDA-Public Use
  Company Number: US-GLAXOSMITHKLINE-USCH2022009741

PATIENT

DRUGS (2)
  1. COSMETICS [Suspect]
     Active Substance: COSMETICS
     Indication: Product used for unknown indication
     Dosage: UNK
  2. COSMETICS [Suspect]
     Active Substance: COSMETICS
     Dosage: UNK

REACTIONS (3)
  - Stab wound [Unknown]
  - Wrong technique in product usage process [Unknown]
  - Product complaint [Unknown]
